FAERS Safety Report 5044376-3 (Version None)
Quarter: 2006Q2

REPORT INFORMATION
  Report Type: 
  Country: None (occurrence: None)
  Receive Date: 20060629
  Receipt Date: 20060616
  Transmission Date: 20061013
  Serious: Yes (Death)
  Sender: FDA-Public Use
  Company Number: 2006077369

PATIENT
  Age: 85 Year
  Sex: Male

DRUGS (13)
  1. FRAGMIN [Suspect]
     Dosage: SUBCUTANEOUS
     Route: 058
     Dates: start: 20060407, end: 20060410
  2. CITALOPRAM HYDROBROMIDE [Suspect]
     Dosage: 20 MG (20 MG, DAILY  INTERVAL EVERY DAY) ORAL
     Route: 048
  3. WARFARIN SODIUM [Suspect]
     Indication: ATRIAL FIBRILLATION
     Dosage: ORAL
     Route: 048
     Dates: end: 20060410
  4. SYMBICORT (BUDESONIDE, FORMOTEROL FUMARATE) [Concomitant]
  5. PROSCAR [Concomitant]
  6. ENALAPRIL MALEATE [Concomitant]
  7. FUROSEMIDE [Concomitant]
  8. ACETAMINOPHEN [Concomitant]
  9. SPIRONOLACTONE [Concomitant]
  10. GLIBENCLAMIDE [Concomitant]
  11. ACETYLSALICYLIC ACID SRT [Concomitant]
  12. COMBIVENT [Concomitant]
  13. ZOPICLONE [Concomitant]

REACTIONS (2)
  - CHOLECYSTECTOMY [None]
  - GASTROINTESTINAL HAEMORRHAGE [None]
